FAERS Safety Report 6285657-5 (Version None)
Quarter: 2009Q3

REPORT INFORMATION
  Report Type: 
  Country: None (occurrence: None)
  Receive Date: 20090727
  Receipt Date: 20090722
  Transmission Date: 20100115
  Serious: Yes (Hospitalization)
  Sender: FDA-Public Use
  Company Number: FR-MERCK-0907FRA00072

PATIENT
  Age: 52 Year
  Sex: Female

DRUGS (6)
  1. COSOPT [Suspect]
     Indication: GLAUCOMA
     Route: 047
     Dates: end: 20090605
  2. AMANTADINE HYDROCHLORIDE [Suspect]
     Indication: MULTIPLE SCLEROSIS
     Route: 065
     Dates: end: 20090605
  3. PROMEGESTONE [Concomitant]
     Route: 065
  4. AMITRIPTYLINE HYDROCHLORIDE [Concomitant]
     Route: 065
  5. CANDESARTAN CILEXETIL [Concomitant]
     Route: 065
  6. CLORAZEPATE DIPOTASSIUM [Concomitant]
     Route: 065

REACTIONS (1)
  - CYANOSIS [None]
